FAERS Safety Report 17066960 (Version 1)
Quarter: 2019Q4

REPORT INFORMATION
  Report Type: Spontaneous
  Country: CZ (occurrence: CZ)
  Receive Date: 20191122
  Receipt Date: 20191122
  Transmission Date: 20200122
  Serious: Yes (Other)
  Sender: FDA-Public Use
  Company Number: NVSC2019CZ044560

PATIENT
  Sex: Female
  Weight: 2.5 kg

DRUGS (7)
  1. VENLAFAXINE [Suspect]
     Active Substance: VENLAFAXINE HYDROCHLORIDE
     Indication: FOETAL EXPOSURE DURING PREGNANCY
     Route: 064
  2. TRAZODONE [Suspect]
     Active Substance: TRAZODONE HYDROCHLORIDE
     Indication: FOETAL EXPOSURE DURING PREGNANCY
     Route: 064
  3. CLONAZEPAM. [Suspect]
     Active Substance: CLONAZEPAM
     Indication: FOETAL EXPOSURE DURING PREGNANCY
     Route: 064
  4. BUPROPION. [Suspect]
     Active Substance: BUPROPION
     Indication: FOETAL EXPOSURE DURING PREGNANCY
     Route: 064
  5. ZOLPIDEM [Suspect]
     Active Substance: ZOLPIDEM TARTRATE
     Indication: FOETAL EXPOSURE DURING PREGNANCY
     Route: 064
  6. TIMOLOL. [Suspect]
     Active Substance: TIMOLOL
     Indication: FOETAL EXPOSURE DURING PREGNANCY
     Route: 064
  7. ALPRAZOLAM. [Suspect]
     Active Substance: ALPRAZOLAM
     Indication: FOETAL EXPOSURE DURING PREGNANCY
     Route: 064

REACTIONS (2)
  - Foetal exposure during pregnancy [Unknown]
  - Haemangioma [Unknown]
